FAERS Safety Report 11279057 (Version 1)
Quarter: 2015Q3

REPORT INFORMATION
  Report Type: Spontaneous
  Country: GB (occurrence: None)
  Receive Date: 20150715
  Receipt Date: 20150715
  Transmission Date: 20151125
  Serious: Yes (Other)
  Sender: FDA-Public Use
  Company Number: PD-NAP-UK-2015-022

PATIENT
  Age: 66 Year
  Sex: Female

DRUGS (3)
  1. STATINS [Concomitant]
     Active Substance: UNSPECIFIED INGREDIENT
  2. ANTIHYPERTENSIVE MEDICATIONS [Concomitant]
  3. NAPROXEN (UNKNOWN) [Suspect]
     Active Substance: NAPROXEN
     Indication: ANALGESIC THERAPY

REACTIONS (4)
  - Mucosal ulceration [None]
  - Intestinal polyp [None]
  - Chordoma [None]
  - Intestinal diaphragm disease [None]
